FAERS Safety Report 12526645 (Version 1)
Quarter: 2016Q3

REPORT INFORMATION
  Report Type: Other
  Country: JP (occurrence: JP)
  Receive Date: 20160705
  Receipt Date: 20160705
  Transmission Date: 20161109
  Serious: Yes (Hospitalization)
  Sender: FDA-Public Use
  Company Number: JP-LUPIN PHARMACEUTICALS INC.-2016-02905

PATIENT
  Age: 82 Year
  Sex: Male

DRUGS (9)
  1. OXATOMIDE [Suspect]
     Active Substance: OXATOMIDE
     Indication: PNEUMONIA
     Route: 048
  2. RABEPRAZOLE [Suspect]
     Active Substance: RABEPRAZOLE
     Indication: PNEUMONIA
     Route: 048
  3. DICLOFENAC [Suspect]
     Active Substance: DICLOFENAC
     Indication: PNEUMONIA
     Route: 048
  4. VALACYCLOVIR [Suspect]
     Active Substance: VALACYCLOVIR HYDROCHLORIDE
     Indication: PNEUMONIA
     Route: 048
  5. DICLOFENAC [Suspect]
     Active Substance: DICLOFENAC
     Indication: PNEUMONIA
     Route: 048
  6. SALBACTUM [Suspect]
     Active Substance: SULBACTAM
     Indication: PNEUMONIA
     Route: 042
  7. AMPICILLIN [Suspect]
     Active Substance: AMPICILLIN
     Indication: PNEUMONIA
     Route: 042
  8. MAGNESIUM OXIDE. [Suspect]
     Active Substance: MAGNESIUM OXIDE
     Indication: PNEUMONIA
     Route: 048
  9. PREDNISOLONE. [Suspect]
     Active Substance: PREDNISOLONE
     Indication: PNEUMONIA
     Route: 048

REACTIONS (2)
  - Altered state of consciousness [Recovered/Resolved]
  - Drug interaction [Unknown]
